FAERS Safety Report 21598486 (Version 2)
Quarter: 2023Q1

REPORT INFORMATION
  Report Type: Spontaneous
  Country: US (occurrence: US)
  Receive Date: 20221115
  Receipt Date: 20230213
  Transmission Date: 20230418
  Serious: No
  Sender: FDA-Public Use
  Company Number: US-ALLERGAN-2230456US

PATIENT
  Age: 76 Year
  Sex: Male

DRUGS (1)
  1. VUITY [Suspect]
     Active Substance: PILOCARPINE HYDROCHLORIDE
     Indication: Visual impairment
     Dosage: 2 GTT, QD
     Route: 047
     Dates: start: 20220725, end: 20220815

REACTIONS (5)
  - Eye disorder [Recovering/Resolving]
  - Eye pain [Recovered/Resolved]
  - Vision blurred [Recovered/Resolved]
  - Eye irritation [Recovered/Resolved]
  - Drug ineffective [Unknown]

NARRATIVE: CASE EVENT DATE: 20220701
